FAERS Safety Report 18324924 (Version 1)
Quarter: 2020Q3

REPORT INFORMATION
  Report Type: Spontaneous
  Country: US (occurrence: US)
  Receive Date: 20200929
  Receipt Date: 20200929
  Transmission Date: 20201103
  Serious: Yes (Disabling)
  Sender: FDA-Public Use
  Company Number: None

PATIENT
  Age: 37 Year
  Sex: Female

DRUGS (1)
  1. VALGANCICLOVIR. [Suspect]
     Active Substance: VALGANCICLOVIR
     Dates: start: 20180928

REACTIONS (3)
  - Insomnia [None]
  - Tinnitus [None]
  - Middle insomnia [None]

NARRATIVE: CASE EVENT DATE: 20200915
